FAERS Safety Report 8829051 (Version 2)
Quarter: 2012Q4

REPORT INFORMATION
  Report Type: 
  Country: AR (occurrence: AR)
  Receive Date: 20121008
  Receipt Date: 20121111
  Transmission Date: 20130627
  Serious: Yes (Other)
  Sender: FDA-Public Use
  Company Number: PHHY2012AR088200

PATIENT
  Sex: Female

DRUGS (3)
  1. ACLASTA [Suspect]
     Indication: OSTEOPOROSIS
     Route: 042
     Dates: start: 20111130
  2. ACLASTA [Suspect]
     Dosage: UNK
     Route: 042
     Dates: start: 20121015
  3. LYRICA [Concomitant]

REACTIONS (7)
  - Spinal disorder [Recovering/Resolving]
  - Spinal compression fracture [Recovering/Resolving]
  - Hypokinesia [Recovering/Resolving]
  - Pain [Recovering/Resolving]
  - Malaise [Recovering/Resolving]
  - Bone pain [Recovering/Resolving]
  - Gait disturbance [Recovering/Resolving]
